FAERS Safety Report 4358900-7 (Version None)
Quarter: 2004Q2

REPORT INFORMATION
  Report Type: 
  Country: None (occurrence: None)
  Receive Date: 20040517
  Receipt Date: 20030130
  Transmission Date: 20050107
  Serious: Yes (Other)
  Sender: FDA-Public Use
  Company Number: PHEH2003US01126

PATIENT
  Age: 72 Year
  Sex: Female

DRUGS (13)
  1. AREDIA [Suspect]
     Indication: MULTIPLE MYELOMA
     Dosage: 90 MG, QMO
     Dates: start: 20000211, end: 20020801
  2. ZOMETA [Suspect]
     Indication: MULTIPLE MYELOMA
     Dosage: 4 MG, QMO
     Dates: start: 20020801
  3. THALIDOMIDE [Concomitant]
     Dosage: 100 MG, UNK
     Dates: end: 20021001
  4. DEXAMETHASONE [Concomitant]
     Dosage: 40 MG, UNK
     Dates: end: 20021001
  5. TENORMIN [Concomitant]
     Dosage: 25 MG, UNK
  6. CARDIZEM [Concomitant]
     Dosage: 120 MG, QD
  7. DURAGESIC [Concomitant]
     Indication: PAIN
     Dosage: 100 MG, /HOUR Q72HRS
     Route: 062
  8. DILAUDID [Concomitant]
     Indication: PAIN
     Dosage: 2 MG, Q4H
  9. PRILOSEC [Concomitant]
     Dosage: 20 MG, QD
  10. M.V.I. [Concomitant]
  11. HUMULIN [Concomitant]
     Dosage: 20 UNITS, UNK
  12. ZOLOFT [Concomitant]
  13. INSULIN LISPRO [Concomitant]
     Dosage: 5 UNITS, UNK

REACTIONS (14)
  - BONE DEBRIDEMENT [None]
  - BONE LESION [None]
  - FISTULA [None]
  - IMPAIRED HEALING [None]
  - MANDIBULECTOMY [None]
  - MULTIPLE MYELOMA [None]
  - OPEN WOUND [None]
  - OSTEOMYELITIS [None]
  - OSTEONECROSIS [None]
  - PAIN IN JAW [None]
  - PATHOLOGICAL FRACTURE [None]
  - SEQUESTRECTOMY [None]
  - SWELLING [None]
  - TOOTH EXTRACTION [None]
